FAERS Safety Report 9895039 (Version 1)
Quarter: 2014Q1

REPORT INFORMATION
  Report Type: Spontaneous
  Country: US (occurrence: US)
  Receive Date: 20140213
  Receipt Date: 20140213
  Transmission Date: 20141002
  Serious: No
  Sender: FDA-Public Use
  Company Number: US-BRISTOL-MYERS SQUIBB COMPANY-17343245

PATIENT
  Age: 59 Year
  Sex: Female

DRUGS (15)
  1. ABATACEPT SUBQ INJECTION 125MG/ML [Suspect]
     Route: 058
  2. AMBIEN [Concomitant]
     Dosage: TAB
  3. PREMPRO [Concomitant]
     Dosage: 1DF=0.45-1.5?TAB
  4. VERAMYST [Concomitant]
     Dosage: SPRAY
  5. NEXIUM [Concomitant]
     Dosage: CAP
  6. METHOTREXATE [Concomitant]
     Dosage: INJ 250/10ML
  7. FISH OIL [Concomitant]
     Dosage: CAP
  8. ROBAXIN [Concomitant]
     Dosage: 1DF=100MG/ML?INJ
  9. ALEVE [Concomitant]
     Dosage: TAB
  10. MULTIVITAMIN [Concomitant]
     Dosage: CAP
  11. CALCIUM + VITAMIN D [Concomitant]
     Dosage: TAB
  12. L-ARGININE [Concomitant]
     Dosage: TAB
  13. GLUCOSE [Concomitant]
     Dosage: GLUCOS CHOND?TAB
  14. FOLIC ACID [Concomitant]
     Dosage: CAP
  15. VITAMIN B COMPLEX [Concomitant]
     Dosage: TAB

REACTIONS (2)
  - Sinusitis [Recovered/Resolved]
  - Viral infection [Recovered/Resolved]
